FAERS Safety Report 13009785 (Version 2)
Quarter: 2017Q1

REPORT INFORMATION
  Report Type: Spontaneous
  Country: US (occurrence: US)
  Receive Date: 20161208
  Receipt Date: 20170316
  Transmission Date: 20170428
  Serious: Yes (Other)
  Sender: FDA-Public Use
  Company Number: US-BAYER-2016-228380

PATIENT
  Age: 36 Year
  Sex: Female
  Weight: 69.39 kg

DRUGS (1)
  1. MIRENA [Suspect]
     Active Substance: LEVONORGESTREL
     Indication: MENORRHAGIA
     Dosage: 20 MCG/24HR, CONT
     Route: 015
     Dates: start: 20151215, end: 20160907

REACTIONS (5)
  - Pelvic abscess [Unknown]
  - Device breakage [Unknown]
  - Genital haemorrhage [Unknown]
  - Abdominal pain lower [Unknown]
  - Pelvic pain [Unknown]

NARRATIVE: CASE EVENT DATE: 2016
